FAERS Safety Report 9072771 (Version 2)
Quarter: 2013Q1

REPORT INFORMATION
  Report Type: Spontaneous
  Country: US (occurrence: US)
  Receive Date: 20130207
  Receipt Date: 20130314
  Transmission Date: 20140127
  Serious: Yes (Hospitalization, Other)
  Sender: FDA-Public Use
  Company Number: US-ELI_LILLY_AND_COMPANY-US201302000147

PATIENT
  Age: 67 Year
  Sex: Male

DRUGS (11)
  1. DULOXETINE HYDROCHLORIDE [Suspect]
     Dosage: 60 MG, UNK
  2. SERTRALINE [Interacting]
     Dosage: 25 MG, EACH MORNING
  3. SERTRALINE [Interacting]
     Dosage: 50 MG, EACH MORNING
  4. SERTRALINE [Interacting]
     Dosage: 75 MG, EACH MORNING
  5. ALPRAZOLAM [Concomitant]
     Dosage: 0.25 MG, BID
  6. ROSUVASTATIN [Concomitant]
     Dosage: 40 MG, QD
  7. METOPROLOL [Concomitant]
     Dosage: 50 MG, QD
  8. AMLODIPINE [Concomitant]
     Dosage: 10 MG, QD
  9. HYDROCHLOROTHIAZIDE/TRIAMTERENE [Concomitant]
  10. METFORMIN [Concomitant]
     Dosage: 500 MG, QD
  11. SITAGLIPTIN [Concomitant]
     Dosage: 100 MG, QD

REACTIONS (3)
  - Gynaecomastia [Recovered/Resolved]
  - Drug interaction [Recovered/Resolved]
  - Hypogonadism male [None]
